FAERS Safety Report 18659184 (Version 1)
Quarter: 2020Q4

REPORT INFORMATION
  Report Type: Spontaneous
  Country: CN (occurrence: CN)
  Receive Date: 20201223
  Receipt Date: 20201223
  Transmission Date: 20210114
  Serious: Yes (Other)
  Sender: FDA-Public Use
  Company Number: CN-PFIZER INC-2020503697

PATIENT
  Age: 81 Year
  Sex: Male
  Weight: 66.2 kg

DRUGS (2)
  1. TAZOCIN [Suspect]
     Active Substance: PIPERACILLIN SODIUM\TAZOBACTAM SODIUM
     Indication: GRANULOCYTE COUNT DECREASED
     Dosage: 4.5 G, 3X/DAY
     Route: 041
     Dates: start: 20201210, end: 20201216
  2. TAZOCIN [Suspect]
     Active Substance: PIPERACILLIN SODIUM\TAZOBACTAM SODIUM
     Indication: INFECTION

REACTIONS (2)
  - Diarrhoea [Recovering/Resolving]
  - Mycotic allergy [Recovering/Resolving]

NARRATIVE: CASE EVENT DATE: 20201216
